FAERS Safety Report 4865325-4 (Version None)
Quarter: 2005Q4

REPORT INFORMATION
  Report Type: 
  Country: None (occurrence: None)
  Receive Date: 20051221
  Receipt Date: 20051221
  Transmission Date: 20060501
  Serious: Yes (Death)
  Sender: FDA-Public Use
  Company Number: None

PATIENT
  Age: 61 Year
  Sex: Female
  Weight: 56.7 kg

DRUGS (2)
  1. CAMPATH [Suspect]
     Indication: LYMPHOPLASMACYTOID LYMPHOMA/IMMUNOCYTOMA
     Dosage: 30MG MON-WED-FRI IV BOLUS
     Route: 040
     Dates: start: 20050810, end: 20050907
  2. CAMPATH [Suspect]
     Indication: WALDENSTROM'S MACROGLOBULINAEMIA
     Dosage: 30MG MON-WED-FRI IV BOLUS
     Route: 040
     Dates: start: 20050810, end: 20050907

REACTIONS (11)
  - ACUTE RESPIRATORY DISTRESS SYNDROME [None]
  - CEREBRAL ARTERY OCCLUSION [None]
  - CYTOMEGALOVIRUS INFECTION [None]
  - EMBOLIC STROKE [None]
  - ENDOCARDITIS [None]
  - LEUKOPENIA [None]
  - PANCYTOPENIA [None]
  - PNEUMONIA [None]
  - PUPILLARY REFLEX IMPAIRED [None]
  - PUPILS UNEQUAL [None]
  - PYREXIA [None]
